FAERS Safety Report 21540305 (Version 1)
Quarter: 2022Q4

REPORT INFORMATION
  Report Type: Spontaneous
  Country: US (occurrence: None)
  Receive Date: 20221101
  Receipt Date: 20221101
  Transmission Date: 20230112
  Serious: Yes (Life-Threatening, Other)
  Sender: FDA-Public Use
  Company Number: None

PATIENT
  Age: 54 Year
  Sex: Male
  Weight: 83.25 kg

DRUGS (4)
  1. VITAMIN C [Suspect]
     Active Substance: ASCORBIC ACID
     Indication: COVID-19 prophylaxis
     Dates: start: 20210510, end: 20210510
  2. MELOXICAM [Concomitant]
     Active Substance: MELOXICAM
  3. LOSARTAN [Concomitant]
     Active Substance: LOSARTAN
  4. CHOLINE CHLORIDE\CYANOCOBALAMIN\INOSITOL\METHIONINE [Suspect]
     Active Substance: CHOLINE CHLORIDE\CYANOCOBALAMIN\INOSITOL\METHIONINE

REACTIONS (4)
  - Basilar artery thrombosis [None]
  - Brachiocephalic vein thrombosis [None]
  - Paraesthesia [None]
  - Burning sensation [None]

NARRATIVE: CASE EVENT DATE: 20210510
